FAERS Safety Report 4956390-4 (Version None)
Quarter: 2006Q1

REPORT INFORMATION
  Report Type: 
  Country: None (occurrence: None)
  Receive Date: 20060328
  Receipt Date: 20060328
  Transmission Date: 20060701
  Serious: Yes (Hospitalization)
  Sender: FDA-Public Use
  Company Number: None

PATIENT
  Age: 52 Year
  Sex: Female
  Weight: 77.1115 kg

DRUGS (1)
  1. MEPROZINE 50/25 CAPSULE OVALITEST [Suspect]
     Indication: PROCEDURAL PAIN
     Dosage: 1EVERY 4 HOURS WEEK OF SURGERY QTY 20

REACTIONS (5)
  - ADVERSE DRUG REACTION [None]
  - CHEST PAIN [None]
  - DIZZINESS [None]
  - DYSPNOEA [None]
  - NAUSEA [None]
